FAERS Safety Report 12935691 (Version 1)
Quarter: 2016Q4

REPORT INFORMATION
  Report Type: Spontaneous
  Country: GB (occurrence: GB)
  Receive Date: 20161114
  Receipt Date: 20161114
  Transmission Date: 20170207
  Serious: Yes (Other)
  Sender: FDA-Public Use
  Company Number: GB-ACCORD-045420

PATIENT
  Age: 50 Year
  Sex: Female
  Weight: 57 kg

DRUGS (4)
  1. AMLODIPINE [Suspect]
     Active Substance: AMLODIPINE BESYLATE
     Indication: PRODUCT USED FOR UNKNOWN INDICATION
     Dates: start: 20160106
  2. RAMIPRIL. [Concomitant]
     Active Substance: RAMIPRIL
     Dates: start: 20161010
  3. NITROFURANTOIN. [Concomitant]
     Active Substance: NITROFURANTOIN
     Dates: start: 20160824, end: 20160827
  4. NORETHISTERONE [Concomitant]
     Active Substance: NORETHINDRONE
     Dosage: FROM DAY 13-26
     Dates: start: 20160902, end: 20160905

REACTIONS (1)
  - Gingival swelling [Recovered/Resolved]

NARRATIVE: CASE EVENT DATE: 20161019
